FAERS Safety Report 6344496-7 (Version None)
Quarter: 2009Q3

REPORT INFORMATION
  Report Type: 
  Country: None (occurrence: None)
  Receive Date: 20090908
  Receipt Date: 20090825
  Transmission Date: 20100115
  Serious: Yes (Other)
  Sender: FDA-Public Use
  Company Number: KR-PFIZER INC-2009260362

PATIENT
  Age: 53 Year

DRUGS (9)
  1. VORICONAZOLE [Suspect]
     Indication: ASPERGILLOSIS
     Dosage: 356.2 MG, UNK, FOR LOADING
     Route: 042
  2. VORICONAZOLE [Suspect]
     Dosage: 237.2 MG, UNK, FOR MAINTENANCE
     Route: 042
     Dates: start: 20081015, end: 20081017
  3. VORICONAZOLE [Suspect]
     Dosage: 229.2 MG, UNK, FOR MAINTENANCE
     Route: 042
     Dates: start: 20081017, end: 20081126
  4. FILGRASTIM [Concomitant]
     Indication: NEUTROPENIA
     Dosage: 300 UG, 1X/DAY
     Route: 042
     Dates: start: 20080916
  5. COTRIM [Concomitant]
     Indication: PNEUMONIA
     Dosage: 60 ML, 3X/DAY
     Route: 042
     Dates: start: 20080902, end: 20081020
  6. VANCOMYCIN [Concomitant]
     Indication: PNEUMONIA
     Dosage: 2.4 G, 3X/DAY
     Route: 042
     Dates: start: 20081005, end: 20081106
  7. MEROPENEM [Concomitant]
     Indication: PNEUMONIA
     Dosage: 3 G, 3X/DAY
     Route: 042
     Dates: start: 20081005, end: 20081106
  8. CEFEPIME [Concomitant]
     Indication: PNEUMONIA
     Dosage: 4 G, 2X/DAY
     Route: 042
     Dates: start: 20081124
  9. INSULIN [Concomitant]
     Indication: HYPERGLYCAEMIA
     Dosage: 20 UNIT/DAY, CONTINUOUS INJECTION
     Route: 042
     Dates: start: 20080903

REACTIONS (2)
  - ATRIAL FIBRILLATION [None]
  - SEPTIC SHOCK [None]
